FAERS Safety Report 24864582 (Version 1)
Quarter: 2025Q1

REPORT INFORMATION
  Report Type: Spontaneous
  Country: DE (occurrence: DE)
  Receive Date: 20250120
  Receipt Date: 20250120
  Transmission Date: 20250409
  Serious: Yes (Hospitalization)
  Sender: ALKEM
  Company Number: DE-ALKEM LABORATORIES LIMITED-DE-ALKEM-2024-14661

PATIENT
  Age: 18 Year
  Sex: Male

DRUGS (15)
  1. LACOSAMIDE [Suspect]
     Active Substance: LACOSAMIDE
     Indication: Epilepsy
     Route: 065
  2. LAMOTRIGINE [Suspect]
     Active Substance: LAMOTRIGINE
     Indication: Epilepsy
     Route: 065
  3. LAMOTRIGINE [Suspect]
     Active Substance: LAMOTRIGINE
     Route: 065
  4. LAMOTRIGINE [Suspect]
     Active Substance: LAMOTRIGINE
     Route: 065
  5. LAMOTRIGINE [Suspect]
     Active Substance: LAMOTRIGINE
     Route: 065
  6. LAMOTRIGINE [Suspect]
     Active Substance: LAMOTRIGINE
     Route: 065
  7. BRIVARACETAM [Suspect]
     Active Substance: BRIVARACETAM
     Indication: Epilepsy
     Dosage: 200 MILLIGRAM, QD
     Route: 065
  8. BRIVARACETAM [Suspect]
     Active Substance: BRIVARACETAM
     Route: 065
  9. BRIVARACETAM [Suspect]
     Active Substance: BRIVARACETAM
     Route: 065
  10. CENOBAMATE [Suspect]
     Active Substance: CENOBAMATE
     Indication: Epilepsy
     Route: 065
  11. CENOBAMATE [Suspect]
     Active Substance: CENOBAMATE
     Indication: Suicide attempt
     Route: 065
  12. CENOBAMATE [Suspect]
     Active Substance: CENOBAMATE
     Indication: Intentional overdose
     Route: 065
  13. CENOBAMATE [Suspect]
     Active Substance: CENOBAMATE
     Route: 065
  14. CENOBAMATE [Suspect]
     Active Substance: CENOBAMATE
     Route: 065
  15. SULTHIAME [Concomitant]
     Active Substance: SULTHIAME
     Indication: Epilepsy
     Route: 065

REACTIONS (6)
  - Drug ineffective [Unknown]
  - Impulsive behaviour [Recovering/Resolving]
  - Mental disorder [Recovering/Resolving]
  - Abnormal behaviour [Unknown]
  - Depressed mood [Unknown]
  - Fatigue [Unknown]
